FAERS Safety Report 5147619-0 (Version None)
Quarter: 2006Q4

REPORT INFORMATION
  Report Type: 
  Country: None (occurrence: None)
  Receive Date: 20061110
  Receipt Date: 20061101
  Transmission Date: 20070319
  Serious: Yes (Other)
  Sender: FDA-Public Use
  Company Number: GB-JNJFOC-20060900451

PATIENT
  Age: 35 Year
  Sex: Female

DRUGS (1)
  1. MICRONOR [Suspect]
     Indication: CONTRACEPTION
     Route: 048

REACTIONS (1)
  - JAUNDICE CHOLESTATIC [None]
